FAERS Safety Report 7433037-9 (Version None)
Quarter: 2011Q2

REPORT INFORMATION
  Report Type: 
  Country: None (occurrence: None)
  Receive Date: 20110422
  Receipt Date: 20110414
  Transmission Date: 20111010
  Serious: Yes (Hospitalization, Other)
  Sender: FDA-Public Use
  Company Number: US-MERCK-1104USA00285

PATIENT
  Age: 55 Year
  Sex: Female
  Weight: 70 kg

DRUGS (5)
  1. NEOPRAL [Concomitant]
     Indication: RENAL TRANSPLANT
     Route: 048
  2. ZOCOR [Suspect]
     Indication: BLOOD CHOLESTEROL INCREASED
     Route: 048
     Dates: end: 20090508
  3. HUMULIN R [Concomitant]
     Indication: DIABETES MELLITUS
     Route: 058
  4. MYFORTIC [Concomitant]
     Route: 065
     Dates: start: 20070130
  5. DIOVAN [Concomitant]
     Indication: HYPERTENSION
     Route: 048

REACTIONS (5)
  - HEPATIC ENZYME INCREASED [None]
  - CEREBROVASCULAR ACCIDENT [None]
  - INTRACRANIAL ANEURYSM [None]
  - RHABDOMYOLYSIS [None]
  - MYALGIA [None]
